FAERS Safety Report 15504082 (Version 1)
Quarter: 2018Q4

REPORT INFORMATION
  Report Type: Spontaneous
  Country: US (occurrence: US)
  Receive Date: 20181009
  Receipt Date: 20181009
  Transmission Date: 20190205
  Serious: Yes (Other)
  Sender: FDA-Public Use
  Company Number: None

PATIENT
  Age: 50 Year
  Sex: Female

DRUGS (4)
  1. ESTRADIOL 0.05MG PATCH [Concomitant]
     Active Substance: ESTRADIOL
     Dates: start: 20180501
  2. AIMOVIG [Suspect]
     Active Substance: ERENUMAB-AOOE
     Indication: MIGRAINE
     Dosage: ?          OTHER FREQUENCY:EVERY 30 DAYS;?
     Route: 058
     Dates: start: 20180910
  3. NARATRIPTAN 2.5MG [Concomitant]
     Dates: start: 20180501
  4. DIVALOPREX 500MG [Concomitant]
     Dates: start: 20180501

REACTIONS (2)
  - Hair texture abnormal [None]
  - Alopecia [None]

NARRATIVE: CASE EVENT DATE: 20180924
